FAERS Safety Report 16351566 (Version 1)
Quarter: 2019Q2

REPORT INFORMATION
  Report Type: Report from Study
  Country: IL (occurrence: IL)
  Receive Date: 20190524
  Receipt Date: 20190524
  Transmission Date: 20190711
  Serious: Yes (Death, Hospitalization, Other)
  Sender: FDA-Public Use
  Company Number: IL-BAYER-2018-114692

PATIENT
  Age: 47 Year
  Sex: Female

DRUGS (10)
  1. ADEMPAS [Suspect]
     Active Substance: RIOCIGUAT
     Indication: PULMONARY HYPERTENSION
     Dosage: 1.5 MG, UNK
     Dates: start: 20180623
  2. CONCOR [Concomitant]
     Active Substance: BISOPROLOL FUMARATE
     Dosage: UNK
  3. ELTROXIN [Concomitant]
     Active Substance: LEVOTHYROXINE
  4. FUROSEMIDE. [Concomitant]
     Active Substance: FUROSEMIDE
     Dosage: UNK
  5. FOLIC ACID. [Concomitant]
     Active Substance: FOLIC ACID
  6. ADEMPAS [Suspect]
     Active Substance: RIOCIGUAT
     Indication: PULMONARY HYPERTENSION
     Dosage: UNK
     Dates: start: 20180610
  7. BONDORMIN [Concomitant]
     Active Substance: BROTIZOLAM
  8. LANTON [Concomitant]
  9. ADEMPAS [Suspect]
     Active Substance: RIOCIGUAT
     Indication: PULMONARY HYPERTENSION
     Dosage: 2.0 MG
  10. CLEXANE [Concomitant]
     Active Substance: ENOXAPARIN SODIUM
     Dosage: UNK

REACTIONS (42)
  - Inflammation of wound [None]
  - Hypoalbuminaemia [None]
  - Cardiac failure congestive [Recovering/Resolving]
  - Epistaxis [Not Recovered/Not Resolved]
  - Dyspepsia [Not Recovered/Not Resolved]
  - Asthenia [Not Recovered/Not Resolved]
  - Epistaxis [None]
  - Ascites [Recovering/Resolving]
  - Cardiomegaly [None]
  - Death [Fatal]
  - Oedema peripheral [None]
  - Blood pressure decreased [Recovered/Resolved]
  - Hypotension [Not Recovered/Not Resolved]
  - Haemoptysis [Recovered/Resolved]
  - Oedema peripheral [Recovering/Resolving]
  - Gait disturbance [Recovering/Resolving]
  - Jugular vein distension [Recovering/Resolving]
  - Asthenia [Recovering/Resolving]
  - Cardiac murmur [None]
  - Blood pressure systolic decreased [Recovered/Resolved]
  - Chest discomfort [Recovered/Resolved]
  - Pleural effusion [Recovering/Resolving]
  - Hypokalaemia [Recovering/Resolving]
  - Blood pressure systolic decreased [Recovered/Resolved]
  - Inappropriate schedule of product administration [Not Recovered/Not Resolved]
  - Inappropriate schedule of product administration [None]
  - Bedridden [Recovering/Resolving]
  - Hypoproteinaemia [None]
  - Malaise [None]
  - Hyperventilation [Recovering/Resolving]
  - Muscular weakness [Recovering/Resolving]
  - Product dose omission [Recovered/Resolved]
  - Dyspnoea [None]
  - Blood pressure systolic decreased [Recovered/Resolved]
  - Blood pressure decreased [Not Recovered/Not Resolved]
  - Inappropriate schedule of product administration [None]
  - Incorrect product administration duration [None]
  - Dyspnoea [Recovering/Resolving]
  - Pain in extremity [Recovering/Resolving]
  - Rales [None]
  - Pulmonary congestion [Recovering/Resolving]
  - Lung hypoinflation [None]

NARRATIVE: CASE EVENT DATE: 2018
